FAERS Safety Report 5101196-9 (Version None)
Quarter: 2006Q3

REPORT INFORMATION
  Report Type: 
  Country: None (occurrence: None)
  Receive Date: 20060911
  Receipt Date: 20060818
  Transmission Date: 20061208
  Serious: Yes (Other)
  Sender: FDA-Public Use
  Company Number: PHNR2006AU01063

PATIENT
  Age: 8 Year
  Sex: Female

DRUGS (3)
  1. ELIDEL [Suspect]
     Indication: ECZEMA
     Dosage: ONCE OR TWICE DAILY
     Route: 061
     Dates: start: 20060726, end: 20060818
  2. STEROIDS NOS [Concomitant]
     Route: 061
  3. STEROIDS NOS [Concomitant]
     Route: 061

REACTIONS (1)
  - INTRAOCULAR PRESSURE INCREASED [None]
